FAERS Safety Report 5790302-9 (Version None)
Quarter: 2008Q2

REPORT INFORMATION
  Report Type: 
  Country: None (occurrence: None)
  Receive Date: 20080626
  Receipt Date: 20080620
  Transmission Date: 20081010
  Serious: Yes (Other)
  Sender: FDA-Public Use
  Company Number: AU-ASTRAZENECA-2008AP02369

PATIENT
  Age: 50 Year
  Sex: Female

DRUGS (1)
  1. NAROPIN [Suspect]
     Indication: ABDOMINAL OPERATION
     Dosage: EITHER 0.75% OR 1% GIVEN VIA PAIN PUMP
     Route: 065

REACTIONS (2)
  - CONVULSION [None]
  - INTENTIONAL OVERDOSE [None]
